FAERS Safety Report 13287068 (Version 1)
Quarter: 2017Q1

REPORT INFORMATION
  Report Type: Spontaneous
  Country: US (occurrence: US)
  Receive Date: 20170302
  Receipt Date: 20170302
  Transmission Date: 20170428
  Serious: No
  Sender: FDA-Public Use
  Company Number: US-PFIZER INC-2017039542

PATIENT
  Age: 64 Year
  Sex: Male

DRUGS (1)
  1. SKELAXIN [Suspect]
     Active Substance: METAXALONE
     Dosage: UNK
     Dates: start: 20140611

REACTIONS (2)
  - Mental status changes [Unknown]
  - Drug intolerance [Unknown]
